FAERS Safety Report 15963983 (Version 1)
Quarter: 2019Q1

REPORT INFORMATION
  Report Type: Spontaneous
  Country: FR (occurrence: FR)
  Receive Date: 20190214
  Receipt Date: 20190214
  Transmission Date: 20190417
  Serious: Yes (Other)
  Sender: FDA-Public Use
  Company Number: FR-009507513-1902FRA000980

PATIENT
  Age: 59 Year
  Sex: Female
  Weight: 59 kg

DRUGS (1)
  1. DIPROSTENE [Suspect]
     Active Substance: BETAMETHASONE DIPROPIONATE\BETAMETHASONE SODIUM PHOSPHATE
     Indication: PERIARTHRITIS
     Route: 014
     Dates: start: 20190109, end: 20190109

REACTIONS (5)
  - Nausea [Recovered/Resolved]
  - Vertigo [Recovered/Resolved]
  - Hot flush [Recovering/Resolving]
  - Headache [Recovered/Resolved]
  - Asthenia [Recovering/Resolving]

NARRATIVE: CASE EVENT DATE: 20190109
